FAERS Safety Report 8446142-5 (Version None)
Quarter: 2012Q2

REPORT INFORMATION
  Report Type: 
  Country: None (occurrence: None)
  Receive Date: 20120618
  Receipt Date: 20120604
  Transmission Date: 20120825
  Serious: No
  Sender: FDA-Public Use
  Company Number: US-ASTRAZENECA-2010SE22766

PATIENT
  Age: 56 Year
  Sex: Female

DRUGS (3)
  1. SEROQUEL [Suspect]
     Route: 048
  2. SEROQUEL [Suspect]
     Route: 048
  3. RHINOCORT [Suspect]
     Route: 045

REACTIONS (3)
  - SOMNOLENCE [None]
  - INTENTIONAL DRUG MISUSE [None]
  - SINUSITIS [None]
